FAERS Safety Report 14543602 (Version 1)
Quarter: 2018Q1

REPORT INFORMATION
  Report Type: Spontaneous
  Country: US (occurrence: IN)
  Receive Date: 20180216
  Receipt Date: 20180216
  Transmission Date: 20180509
  Serious: Yes (Other)
  Sender: FDA-Public Use
  Company Number: US-SUNOVION-2018SUN000591

PATIENT
  Sex: Male
  Weight: 2.19 kg

DRUGS (6)
  1. PROGESTERONE. [Suspect]
     Active Substance: PROGESTERONE
     Indication: FOETAL EXPOSURE DURING PREGNANCY
     Dosage: UNK (MATERNAL DOSE: 250 MG)
     Route: 064
  2. GLYCOPYRROLATE. [Suspect]
     Active Substance: GLYCOPYRROLATE
     Indication: FOETAL EXPOSURE DURING PREGNANCY
     Dosage: UNK
     Route: 064
  3. THIOPENTONE [Suspect]
     Active Substance: THIOPENTAL SODIUM
     Indication: FOETAL EXPOSURE DURING PREGNANCY
     Dosage: UNK
     Route: 064
  4. SUCCINYLCHOLINE [Suspect]
     Active Substance: SUCCINYLCHOLINE
     Indication: FOETAL EXPOSURE DURING PREGNANCY
     Dosage: UNK
     Route: 064
  5. HALOPERIDOL. [Suspect]
     Active Substance: HALOPERIDOL
     Indication: FOETAL EXPOSURE DURING PREGNANCY
     Dosage: UNK (MATERNAL DOSE: 5-10 MG QD)
     Route: 064
  6. BETAMETHASONE. [Suspect]
     Active Substance: BETAMETHASONE
     Indication: FOETAL EXPOSURE DURING PREGNANCY
     Dosage: UNK (MATERNAL DOSE: 12 MG)
     Route: 064

REACTIONS (2)
  - Foetal exposure during pregnancy [Unknown]
  - Low birth weight baby [Unknown]
